FAERS Safety Report 5781065-1 (Version None)
Quarter: 2008Q2

REPORT INFORMATION
  Report Type: 
  Country: None (occurrence: None)
  Receive Date: 20080618
  Receipt Date: 20080612
  Transmission Date: 20081010
  Serious: Yes (Death, Hospitalization)
  Sender: FDA-Public Use
  Company Number: 2008SP011582

PATIENT
  Age: 43 Year
  Sex: Female

DRUGS (4)
  1. INTRON A [Suspect]
     Indication: HEPATITIS C
     Dosage: ; TIW;
  2. MIDODRINE [Concomitant]
  3. FLUDROCORTISONE ACETATE [Concomitant]
  4. PHOSLO [Concomitant]

REACTIONS (6)
  - ASCITES [None]
  - GENERAL PHYSICAL HEALTH DETERIORATION [None]
  - HEPATIC FIBROSIS [None]
  - HEPATIC STEATOSIS [None]
  - PLATELET COUNT DECREASED [None]
  - PORTAL HYPERTENSION [None]
